FAERS Safety Report 4312213-8 (Version None)
Quarter: 2004Q1

REPORT INFORMATION
  Report Type: 
  Country: None (occurrence: None)
  Receive Date: 20040305
  Receipt Date: 20040217
  Transmission Date: 20041129
  Serious: Yes (Life-Threatening, Hospitalization)
  Sender: FDA-Public Use
  Company Number: WAES 0402USA01249

PATIENT
  Age: 73 Year
  Sex: Male

DRUGS (8)
  1. BEZAFIBRATE [Concomitant]
     Dates: start: 19990901, end: 20000701
  2. IRSOGLADINE MALEATE [Concomitant]
     Dates: start: 19990601
  3. NILVADIPINE [Concomitant]
     Dates: start: 19990601
  4. PENTOXIFYLLINE [Concomitant]
     Dates: start: 19990601
  5. ZOCOR [Suspect]
     Route: 048
     Dates: start: 19991001, end: 20000401
  6. ZOCOR [Suspect]
     Route: 048
     Dates: start: 20000401, end: 20010701
  7. TICLOPIDINE HYDROCHLORIDE [Concomitant]
     Dates: start: 19990601
  8. VOGLIBOSE [Concomitant]
     Dates: start: 19990601

REACTIONS (3)
  - PLEURISY [None]
  - POLYMYALGIA RHEUMATICA [None]
  - SYSTEMIC LUPUS ERYTHEMATOSUS [None]
